FAERS Safety Report 8900914 (Version 3)
Quarter: 2012Q4

REPORT INFORMATION
  Report Type: 
  Country: BR (occurrence: BR)
  Receive Date: 20121109
  Receipt Date: 20121218
  Transmission Date: 20130627
  Serious: Yes (Hospitalization, Other)
  Sender: FDA-Public Use
  Company Number: PHHY2012BR103023

PATIENT
  Sex: Female
  Weight: 67 kg

DRUGS (4)
  1. CARBAMAZEPINE [Suspect]
     Indication: HEADACHE
     Dosage: 1 DF, per day
     Route: 048
  2. DIOVAN AMLO FIX [Suspect]
     Indication: HYPERTENSION
     Dosage: 1 DF, daily
     Route: 048
  3. AMYTRIL [Concomitant]
     Indication: HEADACHE
     Dosage: 25 mg, per day
     Route: 048
  4. RIVOTRIL [Concomitant]
     Indication: SLEEP DISORDER
     Dosage: 2 mg, per day
     Route: 048

REACTIONS (5)
  - Angina pectoris [Unknown]
  - Chest pain [Not Recovered/Not Resolved]
  - Dyspnoea [Not Recovered/Not Resolved]
  - Blood pressure increased [Recovered/Resolved]
  - Blood pressure fluctuation [Unknown]
